FAERS Safety Report 23465870 (Version 1)
Quarter: 2024Q1

REPORT INFORMATION
  Report Type: Spontaneous
  Country: CN (occurrence: CN)
  Receive Date: 20240201
  Receipt Date: 20240201
  Transmission Date: 20240410
  Serious: Yes (Hospitalization, Other)
  Sender: FDA-Public Use
  Company Number: CN-009507513-2401CHN016072

PATIENT
  Age: 72 Year
  Sex: Male

DRUGS (1)
  1. KEYTRUDA [Suspect]
     Active Substance: PEMBROLIZUMAB
     Indication: Kaposi^s sarcoma
     Dosage: 200 MG, Q3W
     Route: 041
     Dates: start: 20230917, end: 20231030

REACTIONS (2)
  - Myelosuppression [Recovering/Resolving]
  - C-reactive protein abnormal [Unknown]

NARRATIVE: CASE EVENT DATE: 20231218
